FAERS Safety Report 5842577-5 (Version None)
Quarter: 2008Q3

REPORT INFORMATION
  Report Type: 
  Country: None (occurrence: None)
  Receive Date: 20080812
  Receipt Date: 20080804
  Transmission Date: 20090109
  Serious: Yes (Death, Hospitalization, Other)
  Sender: FDA-Public Use
  Company Number: US-PFIZER INC-2008064966

PATIENT
  Sex: Male
  Weight: 81.6 kg

DRUGS (2)
  1. LIPITOR [Suspect]
     Indication: BLOOD CHOLESTEROL INCREASED
  2. LISINOPRIL [Concomitant]

REACTIONS (7)
  - ABDOMINAL PAIN [None]
  - ARTERIAL RUPTURE [None]
  - HAEMOGLOBIN DECREASED [None]
  - HAEMORRHAGE [None]
  - HOSPITALISATION [None]
  - PANCREATITIS CHRONIC [None]
  - PANCREATITIS NECROTISING [None]
